FAERS Safety Report 8170614-4 (Version None)
Quarter: 2012Q1

REPORT INFORMATION
  Report Type: 
  Country: None (occurrence: None)
  Receive Date: 20120104
  Receipt Date: 20111012
  Transmission Date: 20120608
  Serious: No
  Sender: FDA-Public Use
  Company Number: 2011HGS-002635

PATIENT
  Age: 43 Year
  Sex: Female
  Weight: 88.4514 kg

DRUGS (12)
  1. NEURONTIN [Concomitant]
  2. BENLYSTA [Suspect]
     Indication: SYSTEMIC LUPUS ERYTHEMATOSUS
     Dosage: 10 MG/KG, 1 IN 2 WK, INTRAVENOUS DRIP
     Route: 041
     Dates: start: 20111005
  3. METHOTREXATE [Concomitant]
  4. SPIRONOLACTONE [Concomitant]
  5. PILOCARPINE [Concomitant]
  6. FOLIC ACID [Concomitant]
  7. XANAX [Concomitant]
  8. NISEDIAC (NIFEDIPINE) [Concomitant]
  9. PLAQUENIL [Concomitant]
  10. BIODENTICAL HORMONES (HORMONES AND RELATED AGENTS) [Concomitant]
  11. PREDNISONE TAB [Concomitant]
  12. TRILEPTAL [Concomitant]

REACTIONS (3)
  - NAUSEA [None]
  - HEADACHE [None]
  - DIARRHOEA [None]
